FAERS Safety Report 9603244 (Version 2)
Quarter: 2013Q4

REPORT INFORMATION
  Report Type: Spontaneous
  Country: JP (occurrence: JP)
  Receive Date: 20131007
  Receipt Date: 20131007
  Transmission Date: 20140711
  Serious: Yes (Death, Hospitalization)
  Sender: FDA-Public Use
  Company Number: JP-BAXTER-2013BAX035660

PATIENT
  Sex: Male
  Weight: 36 kg

DRUGS (1)
  1. DIANEAL-N PD-4 2.5 PD SOLUTION [Suspect]
     Indication: GLOMERULONEPHRITIS CHRONIC
     Route: 033
     Dates: start: 20110601, end: 20130923

REACTIONS (2)
  - Asthenia [Fatal]
  - Heat illness [Not Recovered/Not Resolved]
